FAERS Safety Report 5630584-7 (Version None)
Quarter: 2008Q1

REPORT INFORMATION
  Report Type: 
  Country: None (occurrence: None)
  Receive Date: 20080219
  Receipt Date: 20080218
  Transmission Date: 20080703
  Serious: Yes (Hospitalization)
  Sender: FDA-Public Use
  Company Number: B0507009A

PATIENT

DRUGS (15)
  1. MELPHALAN [Suspect]
     Indication: BONE MARROW TRANSPLANT
     Dosage: 350MG PER DAY
     Route: 042
     Dates: start: 20080128, end: 20080128
  2. ZOPHREN [Concomitant]
     Dosage: 16MG SINGLE DOSE
     Route: 065
     Dates: start: 20080128, end: 20080128
  3. DEXAMETHASONE TAB [Concomitant]
     Dosage: 20MG SINGLE DOSE
     Route: 042
     Dates: start: 20080128, end: 20080128
  4. GENTAMICIN [Concomitant]
  5. BACTRIM [Concomitant]
  6. FUNGIZONE [Concomitant]
     Route: 048
  7. VALACYCLOVIR [Concomitant]
  8. TOPALGIC (FRANCE) [Concomitant]
     Route: 048
  9. MOPRAL [Concomitant]
     Route: 048
  10. HEPARIN [Concomitant]
  11. MAG 2 [Concomitant]
  12. 5% GLUCOSE [Concomitant]
  13. SODIUM BICARBONATE [Concomitant]
  14. POTASSIUM CHLORIDE [Concomitant]
  15. CALCIUM FOLINATE [Concomitant]

REACTIONS (4)
  - BLOOD PRESSURE DECREASED [None]
  - CARDIAC OUTPUT DECREASED [None]
  - CARDIOGENIC SHOCK [None]
  - PHARMACEUTICAL PRODUCT COMPLAINT [None]
